FAERS Safety Report 8516383-7 (Version None)
Quarter: 2012Q3

REPORT INFORMATION
  Report Type: 
  Country: None (occurrence: None)
  Receive Date: 20120718
  Receipt Date: 20120709
  Transmission Date: 20120928
  Serious: Yes (Hospitalization)
  Sender: FDA-Public Use
  Company Number: DE-BIOGENIDEC-2012BI024611

PATIENT
  Sex: Male
  Weight: 78 kg

DRUGS (2)
  1. IBUPROFEN [Concomitant]
     Indication: PROPHYLAXIS
     Dates: start: 20090501
  2. AVONEX [Suspect]
     Indication: MULTIPLE SCLEROSIS
     Route: 030
     Dates: start: 20090301

REACTIONS (2)
  - OPTIC NEURITIS [None]
  - NIGHTMARE [None]
